FAERS Safety Report 7886713-8 (Version None)
Quarter: 2011Q4

REPORT INFORMATION
  Report Type: 
  Country: None (occurrence: None)
  Receive Date: 20111102
  Receipt Date: 20110709
  Transmission Date: 20120403
  Serious: No
  Sender: FDA-Public Use
  Company Number: US-AMGEN-USASP2011035074

PATIENT
  Age: 40 Year
  Sex: Female

DRUGS (1)
  1. ENBREL [Suspect]
     Indication: RHEUMATOID ARTHRITIS
     Dosage: 50 MG, QWK
     Dates: start: 20110624

REACTIONS (10)
  - HYPERVENTILATION [None]
  - FEELING HOT [None]
  - PAIN [None]
  - NAUSEA [None]
  - DIZZINESS [None]
  - ABDOMINAL PAIN UPPER [None]
  - COLD SWEAT [None]
  - PRESYNCOPE [None]
  - UNDERDOSE [None]
  - INJECTION SITE PAIN [None]
